FAERS Safety Report 7892261-1 (Version None)
Quarter: 2011Q4

REPORT INFORMATION
  Report Type: 
  Country: None (occurrence: None)
  Receive Date: 20111104
  Receipt Date: 20111027
  Transmission Date: 20120403
  Serious: No
  Sender: FDA-Public Use
  Company Number: US-BIOGENIDEC-2010BI020514

PATIENT
  Age: 52 Year
  Sex: Female

DRUGS (2)
  1. AVONEX [Concomitant]
     Indication: MULTIPLE SCLEROSIS
     Route: 030
  2. TYSABRI [Suspect]
     Indication: MULTIPLE SCLEROSIS
     Route: 042
     Dates: start: 20091012, end: 20110321

REACTIONS (10)
  - BACK PAIN [None]
  - SPINAL DISORDER [None]
  - SPINAL OSTEOARTHRITIS [None]
  - MENTAL IMPAIRMENT [None]
  - ARTHRITIS [None]
  - SCIATICA [None]
  - MUSCULAR WEAKNESS [None]
  - PROCEDURAL PAIN [None]
  - EXOSTOSIS [None]
  - MULTIPLE SCLEROSIS RELAPSE [None]
